FAERS Safety Report 9034232 (Version 1)
Quarter: 2013Q1

REPORT INFORMATION
  Report Type: Spontaneous
  Country: US (occurrence: None)
  Receive Date: 20130116
  Receipt Date: 20130116
  Transmission Date: 20140127
  Serious: Yes (Other)
  Sender: FDA-Public Use
  Company Number: None

PATIENT
  Age: 63 Year
  Sex: Female
  Weight: 71.67 kg

DRUGS (2)
  1. FLUTICASONE PROPIONATE [Suspect]
     Dosage: 2 SPRAYS TWICE FOR 7 DAYS 7 DAYS NASAL
     Route: 045
     Dates: start: 20130113, end: 20130114
  2. FLUTICASONE PROPIONATE [Suspect]
     Dosage: 2 SPRAYS TWICE FOR 7 DAYS 7 DAYS NASAL
     Route: 045
     Dates: start: 20130113, end: 20130114

REACTIONS (2)
  - Dry eye [None]
  - Eye pain [None]
